FAERS Safety Report 22372814 (Version 1)
Quarter: 2023Q2

REPORT INFORMATION
  Report Type: Spontaneous
  Country: US (occurrence: None)
  Receive Date: 20230525
  Receipt Date: 20230525
  Transmission Date: 20230721
  Serious: Yes (Life-Threatening, Other)
  Sender: FDA-Public Use
  Company Number: None

PATIENT
  Age: 27 Year
  Sex: Female

DRUGS (3)
  1. DEPAKOTE [Suspect]
     Active Substance: DIVALPROEX SODIUM
  2. KLONOPIN [Suspect]
     Active Substance: CLONAZEPAM
  3. RISPERDAL [Suspect]
     Active Substance: RISPERIDONE

REACTIONS (7)
  - Amnesia [None]
  - Dyspnoea [None]
  - Eye disorder [None]
  - Headache [None]
  - Blood disorder [None]
  - Product complaint [None]
  - Cerebral disorder [None]
